FAERS Safety Report 12717291 (Version 1)
Quarter: 2016Q3

REPORT INFORMATION
  Report Type: Spontaneous
  Country: GB (occurrence: GB)
  Receive Date: 20160906
  Receipt Date: 20160906
  Transmission Date: 20161109
  Serious: Yes (Other)
  Sender: FDA-Public Use
  Company Number: GB-CONCORDIA PHARMACEUTICALS INC.-CO-PL-UK-2016-454

PATIENT
  Sex: Female

DRUGS (7)
  1. LANSOPRAZOLE. [Concomitant]
     Active Substance: LANSOPRAZOLE
  2. MEPACRINE [Concomitant]
     Active Substance: QUINACRINE
  3. PLAQUENIL [Suspect]
     Active Substance: HYDROXYCHLOROQUINE SULFATE
     Indication: SYSTEMIC LUPUS ERYTHEMATOSUS
     Route: 048
     Dates: start: 198407
  4. QUININE [Concomitant]
     Active Substance: QUININE
  5. PLAQUENIL [Suspect]
     Active Substance: HYDROXYCHLOROQUINE SULFATE
     Route: 048
     Dates: end: 20091008
  6. PREDNISOLONE. [Concomitant]
     Active Substance: PREDNISOLONE
  7. LEVOTHYROXINE SODIUM. [Concomitant]
     Active Substance: LEVOTHYROXINE SODIUM

REACTIONS (24)
  - Blindness [Unknown]
  - Photophobia [Unknown]
  - Insomnia [Unknown]
  - Burning sensation [Unknown]
  - Dysgeusia [Unknown]
  - Confusional state [Unknown]
  - Chills [Unknown]
  - Dyspnoea [Unknown]
  - Skin tightness [Unknown]
  - Nasopharyngitis [Unknown]
  - Nausea [Unknown]
  - Vision blurred [Unknown]
  - Disorientation [Unknown]
  - Paraesthesia [Unknown]
  - Product quality issue [Unknown]
  - Feeling abnormal [Unknown]
  - Throat irritation [Unknown]
  - Unevaluable event [Unknown]
  - Lacrimation increased [Unknown]
  - Pain [Unknown]
  - Choking sensation [Unknown]
  - Throat tightness [Unknown]
  - Nasal congestion [Unknown]
  - Head discomfort [Unknown]

NARRATIVE: CASE EVENT DATE: 20090918
